FAERS Safety Report 8908758 (Version 2)
Quarter: 2012Q4

REPORT INFORMATION
  Report Type: 
  Country: US (occurrence: US)
  Receive Date: 20121114
  Receipt Date: 20121227
  Transmission Date: 20130627
  Serious: No
  Sender: FDA-Public Use
  Company Number: US-ASTRAZENECA-2012SE80084

PATIENT
  Sex: Female

DRUGS (1)
  1. SYMBICORT [Suspect]
     Dosage: 160/4.5, 120 DOSES, 1 PUFF TWO TIMES DAILY
     Route: 055

REACTIONS (2)
  - Dyspnoea [Unknown]
  - Off label use [Unknown]
